FAERS Safety Report 5809064-1 (Version None)
Quarter: 2008Q3

REPORT INFORMATION
  Report Type: 
  Country: None (occurrence: None)
  Receive Date: 20080711
  Receipt Date: 20080711
  Transmission Date: 20090109
  Serious: Yes (Life-Threatening, Hospitalization)
  Sender: FDA-Public Use
  Company Number: None

PATIENT
  Age: 47 Year
  Sex: Male
  Weight: 74.8435 kg

DRUGS (1)
  1. CHANTIX [Suspect]
     Indication: SMOKING CESSATION THERAPY
     Dosage: 1 MG BID PO/047
     Route: 048
     Dates: start: 20080501, end: 20080704

REACTIONS (10)
  - ABNORMAL BEHAVIOUR [None]
  - ALCOHOL USE [None]
  - AMNESIA [None]
  - ANKLE FRACTURE [None]
  - DISORIENTATION [None]
  - FALL [None]
  - FOOT FRACTURE [None]
  - LUMBAR VERTEBRAL FRACTURE [None]
  - PERSONALITY CHANGE [None]
  - SOMNOLENCE [None]
